FAERS Safety Report 14184697 (Version 2)
Quarter: 2018Q1

REPORT INFORMATION
  Report Type: Spontaneous
  Country: US (occurrence: US)
  Receive Date: 20171113
  Receipt Date: 20180207
  Transmission Date: 20180508
  Serious: Yes (Other)
  Sender: FDA-Public Use
  Company Number: US-BAYER-2017-212516

PATIENT
  Age: 53 Year
  Sex: Female

DRUGS (2)
  1. MIRENA [Suspect]
     Active Substance: LEVONORGESTREL
     Indication: CONTRACEPTION
  2. MIRENA [Suspect]
     Active Substance: LEVONORGESTREL
     Indication: CONTRACEPTION
     Dosage: 20 MCG/24HR, CONT
     Route: 015
     Dates: start: 20160726, end: 20171213

REACTIONS (17)
  - Gait disturbance [None]
  - Pain in extremity [None]
  - Breast enlargement [None]
  - Fatigue [None]
  - Amenorrhoea [None]
  - Weight increased [None]
  - Genital haemorrhage [None]
  - Headache [None]
  - Bacterial infection [None]
  - Fungal infection [None]
  - Alopecia [None]
  - Arthralgia [None]
  - Breast tenderness [None]
  - Deafness [None]
  - Abdominal pain lower [None]
  - Nausea [None]
  - Adverse event [None]
